FAERS Safety Report 6131529-6 (Version None)
Quarter: 2009Q1

REPORT INFORMATION
  Report Type: 
  Country: None (occurrence: None)
  Receive Date: 20090325
  Receipt Date: 20081212
  Transmission Date: 20090719
  Serious: Yes (Life-Threatening, Hospitalization)
  Sender: FDA-Public Use
  Company Number: US-BRISTOL-MYERS SQUIBB COMPANY-14343479

PATIENT
  Age: 68 Year
  Sex: Male

DRUGS (3)
  1. ERBITUX [Suspect]
     Indication: COLON CANCER
     Dosage: THERAPY DURATION 5-6 MINS
     Route: 042
     Dates: start: 20060905, end: 20060905
  2. XELODA [Suspect]
     Dosage: 200MG QD X14 DAYS
     Route: 048
  3. ELOXATIN [Suspect]

REACTIONS (1)
  - ANAPHYLACTIC REACTION [None]
